FAERS Safety Report 4437027-X (Version None)
Quarter: 2004Q3

REPORT INFORMATION
  Report Type: 
  Country: None (occurrence: None)
  Receive Date: 20040827
  Receipt Date: 20040812
  Transmission Date: 20050211
  Serious: Yes (Hospitalization)
  Sender: FDA-Public Use
  Company Number: 2004-BP-06710BP

PATIENT
  Sex: Female

DRUGS (2)
  1. SPIRIVA [Suspect]
     Indication: CHRONIC OBSTRUCTIVE AIRWAYS DISEASE
     Dosage: 18 MCG (18 MCG), IH
     Route: 055
     Dates: start: 20040725
  2. THEOPHYLLINE [Suspect]
     Indication: CHRONIC OBSTRUCTIVE AIRWAYS DISEASE
     Dosage: PO
     Route: 048
     Dates: start: 20040724

REACTIONS (8)
  - ARTHRALGIA [None]
  - BLOOD IMMUNOGLOBULIN E INCREASED [None]
  - BODY TEMPERATURE INCREASED [None]
  - DYSPNOEA [None]
  - HEADACHE [None]
  - PRURITUS GENERALISED [None]
  - RASH MACULAR [None]
  - RED BLOOD CELL SEDIMENTATION RATE INCREASED [None]
